FAERS Safety Report 4402757-2 (Version None)
Quarter: 2004Q3

REPORT INFORMATION
  Report Type: 
  Country: None (occurrence: None)
  Receive Date: 20040720
  Receipt Date: 20040720
  Transmission Date: 20050211
  Serious: Yes (Life-Threatening, Disabling, Other)
  Sender: FDA-Public Use
  Company Number: None

PATIENT
  Age: 45 Year
  Sex: Female
  Weight: 72.5755 kg

DRUGS (1)
  1. ZOLOFT [Suspect]
     Indication: ANXIETY
     Dosage: 10 TO 40 MG ONE A DAY ORAL
     Route: 048
     Dates: start: 20000901, end: 20010404

REACTIONS (15)
  - AGITATION [None]
  - AKATHISIA [None]
  - ANGER [None]
  - DYSPHAGIA [None]
  - DYSPNOEA [None]
  - EMOTIONAL DISORDER [None]
  - EUPHORIC MOOD [None]
  - FEELING ABNORMAL [None]
  - INFLUENZA LIKE ILLNESS [None]
  - INSOMNIA [None]
  - LOSS OF EMPLOYMENT [None]
  - NERVOUS SYSTEM DISORDER [None]
  - OROPHARYNGEAL SWELLING [None]
  - PSYCHOMOTOR HYPERACTIVITY [None]
  - SOCIAL PROBLEM [None]
